FAERS Safety Report 7502537-5 (Version None)
Quarter: 2011Q2

REPORT INFORMATION
  Report Type: 
  Country: None (occurrence: None)
  Receive Date: 20110517
  Receipt Date: 20110505
  Transmission Date: 20111010
  Serious: Yes (Other)
  Sender: FDA-Public Use
  Company Number: DSU-2011-00770

PATIENT
  Age: 66 Year
  Sex: Male
  Weight: 103.8737 kg

DRUGS (11)
  1. LORAZEPAM [Concomitant]
  2. DOXYCYCLINE [Concomitant]
  3. TRAVATAN (TRAVOPROST) (TRAVOPROST) [Concomitant]
  4. WELCHOL [Suspect]
     Indication: TYPE 2 DIABETES MELLITUS
     Dosage: 3750 MG (3750 MG, QD), PER ORAL; 3750 MG (3750 MG, QD), PER ORAL
     Route: 048
     Dates: start: 20090301
  5. WELCHOL [Suspect]
     Indication: HYPERCHOLESTEROLAEMIA
     Dosage: 3750 MG (3750 MG, QD), PER ORAL; 3750 MG (3750 MG, QD), PER ORAL
     Route: 048
     Dates: start: 20090301
  6. WELCHOL [Suspect]
     Indication: TYPE 2 DIABETES MELLITUS
     Dosage: 3750 MG (3750 MG, QD), PER ORAL; 3750 MG (3750 MG, QD), PER ORAL
     Route: 048
     Dates: end: 20101201
  7. WELCHOL [Suspect]
     Indication: HYPERCHOLESTEROLAEMIA
     Dosage: 3750 MG (3750 MG, QD), PER ORAL; 3750 MG (3750 MG, QD), PER ORAL
     Route: 048
     Dates: end: 20101201
  8. DIOVAN HCT (HYDROCHLOROTHIAZIDE, VALSARTAN) (TABLET) (HYDROCHLOROTHIAI [Concomitant]
  9. SIMVASTATIN (SIMVASTATIN (TABLET) (SIMVASTATIN) [Concomitant]
  10. DOXAZOSIN (DOXAZOSIN) (DOXAZOSIN) [Concomitant]
  11. FLUOXETINE [Concomitant]

REACTIONS (4)
  - BALANCE DISORDER [None]
  - CONVULSION [None]
  - CEREBRAL ATROPHY [None]
  - MYALGIA [None]
